FAERS Safety Report 8778866 (Version 2)
Quarter: 2018Q4

REPORT INFORMATION
  Report Type: Spontaneous
  Country: FR (occurrence: FR)
  Receive Date: 20120912
  Receipt Date: 20181031
  Transmission Date: 20190205
  Serious: Yes (Hospitalization)
  Sender: FDA-Public Use
  Company Number: FR-JNJFOC-20120901332

PATIENT
  Age: 75 Year
  Sex: Female

DRUGS (14)
  1. RISPERDAL [Suspect]
     Active Substance: RISPERIDONE
     Indication: PRODUCT USED FOR UNKNOWN INDICATION
     Route: 048
  2. RISPERDAL [Suspect]
     Active Substance: RISPERIDONE
     Indication: PRODUCT USED FOR UNKNOWN INDICATION
     Route: 048
  3. DAFALGAN [Concomitant]
     Active Substance: ACETAMINOPHEN
     Route: 065
  4. LEVOTHYROX [Concomitant]
     Active Substance: LEVOTHYROXINE
     Route: 065
  5. TRANSIPEG [Concomitant]
     Route: 065
  6. EBIXA [Suspect]
     Active Substance: MEMANTINE HYDROCHLORIDE
     Indication: PRODUCT USED FOR UNKNOWN INDICATION
     Route: 048
     Dates: start: 20120511, end: 20120704
  7. DUROGESIC [Concomitant]
     Active Substance: FENTANYL
     Route: 062
  8. FLUDEX                             /00340101/ [Concomitant]
     Active Substance: INDAPAMIDE
     Route: 065
  9. MIANSERIN HYDROCHLORIDE [Suspect]
     Active Substance: MIANSERIN HYDROCHLORIDE
     Indication: PRODUCT USED FOR UNKNOWN INDICATION
     Route: 048
     Dates: end: 20120704
  10. IMOVANE [Suspect]
     Active Substance: ZOPICLONE
     Indication: PRODUCT USED FOR UNKNOWN INDICATION
     Route: 048
     Dates: start: 20110912, end: 20120704
  11. LOXAPAC [Suspect]
     Active Substance: LOXAPINE
     Indication: PRODUCT USED FOR UNKNOWN INDICATION
     Route: 048
     Dates: start: 20120120, end: 20120704
  12. KARDEGIC [Concomitant]
     Active Substance: ASPIRIN DL-LYSINE
     Route: 065
  13. TAHOR [Concomitant]
     Active Substance: ATORVASTATIN CALCIUM
     Route: 065
  14. DEDROGYL [Concomitant]
     Active Substance: CALCIFEDIOL
     Route: 065

REACTIONS (9)
  - Pneumonia aspiration [Recovering/Resolving]
  - Vomiting [Unknown]
  - Confusional state [Recovered/Resolved]
  - Renal impairment [Unknown]
  - Urinary retention [Unknown]
  - Nausea [Unknown]
  - General physical health deterioration [Unknown]
  - Sinus tachycardia [Unknown]
  - Faecaloma [Unknown]

NARRATIVE: CASE EVENT DATE: 20120701
